FAERS Safety Report 9066651 (Version 1)
Quarter: 2013Q1

REPORT INFORMATION
  Report Type: Spontaneous
  Country: FR (occurrence: FR)
  Receive Date: 20130214
  Receipt Date: 20130214
  Transmission Date: 20140127
  Serious: Yes (Life-Threatening, Other)
  Sender: FDA-Public Use
  Company Number: FR-INCYTE CORPORATION-2013IN000292

PATIENT
  Age: 64 Year
  Sex: Female

DRUGS (2)
  1. JAKAVI [Suspect]
     Indication: MYELOFIBROSIS
     Dosage: 15 MG, BID
     Route: 048
     Dates: start: 201212, end: 20130205
  2. SYMBICORT [Concomitant]

REACTIONS (2)
  - Cardio-respiratory arrest [Recovered/Resolved]
  - Bronchospasm [Unknown]
